FAERS Safety Report 13057796 (Version 2)
Quarter: 2017Q1

REPORT INFORMATION
  Report Type: Spontaneous
  Country: JP (occurrence: JP)
  Receive Date: 20161223
  Receipt Date: 20170201
  Transmission Date: 20170428
  Serious: Yes (Hospitalization, Other)
  Sender: FDA-Public Use
  Company Number: JP-SUN PHARMACEUTICAL INDUSTRIES LTD-2016R1-129973

PATIENT
  Sex: Female

DRUGS (2)
  1. FLUNITRAZEPAM [Suspect]
     Active Substance: FLUNITRAZEPAM
     Indication: PRODUCT USED FOR UNKNOWN INDICATION
     Dosage: UNK
     Route: 065
  2. DISOPYRAMIDE [Suspect]
     Active Substance: DISOPYRAMIDE
     Indication: PRODUCT USED FOR UNKNOWN INDICATION
     Dosage: UNK
     Route: 065

REACTIONS (5)
  - Staphylococcal sepsis [Recovering/Resolving]
  - Cardiac arrest [Recovering/Resolving]
  - Endocarditis [Recovering/Resolving]
  - Suicide attempt [Recovering/Resolving]
  - Overdose [Recovering/Resolving]
